FAERS Safety Report 22975490 (Version 12)
Quarter: 2024Q3

REPORT INFORMATION
  Report Type: Report from Study
  Country: ES (occurrence: ES)
  Receive Date: 20230924
  Receipt Date: 20240827
  Transmission Date: 20241017
  Serious: Yes (Hospitalization, Other)
  Sender: ABBVIE
  Company Number: ES-ABBVIE-5329204

PATIENT
  Sex: Male

DRUGS (13)
  1. CARBIDOPA\LEVODOPA [Suspect]
     Active Substance: CARBIDOPA\LEVODOPA
     Indication: Parkinson^s disease
     Route: 050
     Dates: start: 20210708
  2. CARBIDOPA\LEVODOPA [Suspect]
     Active Substance: CARBIDOPA\LEVODOPA
     Route: 050
     Dates: start: 202307
  3. CARBIDOPA\LEVODOPA [Suspect]
     Active Substance: CARBIDOPA\LEVODOPA
     Dosage: FREQUENCY: DECREASES CONTINUES DOSE TO 3.3 ML
     Route: 050
     Dates: start: 2024, end: 20240530
  4. CARBIDOPA\LEVODOPA [Suspect]
     Active Substance: CARBIDOPA\LEVODOPA
     Dosage: DECREASES CONTINUES DOSE TO 3.3 ML
     Route: 050
     Dates: start: 20240530, end: 202406
  5. CARBIDOPA\LEVODOPA [Suspect]
     Active Substance: CARBIDOPA\LEVODOPA
     Dosage: DECREASE CONTINUOUS DOSE TO 3.1ML, LAST ADMIN DATE 2024
     Route: 050
     Dates: start: 202406
  6. QUETIAPINE [Concomitant]
     Active Substance: QUETIAPINE
     Indication: Product used for unknown indication
     Dosage: FREQUENCY TEXT: 0.5-1-1.5
     Route: 065
     Dates: start: 202309, end: 202309
  7. QUETIAPINE [Concomitant]
     Active Substance: QUETIAPINE
     Indication: Product used for unknown indication
     Dosage: TIME INTERVAL: 0.33333333 DAYS: FREQUENCY TEXT: 0-1-1.5
     Dates: start: 202406, end: 202406
  8. RIVASTIGMINE [Concomitant]
     Active Substance: RIVASTIGMINE
     Indication: Product used for unknown indication
  9. CLONAZEPAM [Concomitant]
     Active Substance: CLONAZEPAM
     Indication: Product used for unknown indication
  10. ASPIRIN [Concomitant]
     Active Substance: ASPIRIN
     Indication: Product used for unknown indication
  11. OMEPRAZOLE [Concomitant]
     Active Substance: OMEPRAZOLE
     Indication: Product used for unknown indication
  12. CARBIDOPA\LEVODOPA [Concomitant]
     Active Substance: CARBIDOPA\LEVODOPA
     Indication: Product used for unknown indication
     Dosage: AT NIGHT
  13. LORMETAZEPAM [Concomitant]
     Active Substance: LORMETAZEPAM
     Indication: Product used for unknown indication

REACTIONS (38)
  - Syncope [Not Recovered/Not Resolved]
  - Hospitalisation [Unknown]
  - Haemoglobin abnormal [Unknown]
  - Feeling abnormal [Not Recovered/Not Resolved]
  - Dyskinesia [Recovered/Resolved]
  - Poor quality sleep [Not Recovered/Not Resolved]
  - Enteral nutrition [Not Recovered/Not Resolved]
  - Unevaluable event [Not Recovered/Not Resolved]
  - Gammopathy [Unknown]
  - Disorientation [Unknown]
  - Disease progression [Unknown]
  - Dysphagia [Unknown]
  - Eyelid ptosis [Not Recovered/Not Resolved]
  - Cerebrovascular accident [Unknown]
  - Fall [Not Recovered/Not Resolved]
  - Anaemia [Recovering/Resolving]
  - Mobility decreased [Not Recovered/Not Resolved]
  - Anal incontinence [Not Recovered/Not Resolved]
  - Anxiety [Unknown]
  - Condition aggravated [Not Recovered/Not Resolved]
  - Therapeutic product effect incomplete [Unknown]
  - Blood pressure decreased [Not Recovered/Not Resolved]
  - Pneumonia aspiration [Recovered/Resolved]
  - Nervousness [Unknown]
  - Laziness [Not Recovered/Not Resolved]
  - Hallucination [Recovering/Resolving]
  - Unevaluable event [Not Recovered/Not Resolved]
  - Asthenia [Not Recovered/Not Resolved]
  - Unevaluable event [Unknown]
  - Dysphemia [Not Recovered/Not Resolved]
  - Device issue [Recovered/Resolved]
  - Bacterial test positive [Unknown]
  - Gait disturbance [Not Recovered/Not Resolved]
  - Pallor [Not Recovered/Not Resolved]
  - Blood pressure decreased [Not Recovered/Not Resolved]
  - Bedridden [Unknown]
  - Orthostatic hypotension [Recovering/Resolving]
  - Screaming [Not Recovered/Not Resolved]

NARRATIVE: CASE EVENT DATE: 20230101
